FAERS Safety Report 24968372 (Version 1)
Quarter: 2025Q1

REPORT INFORMATION
  Report Type: Spontaneous
  Country: ES (occurrence: ES)
  Receive Date: 20250214
  Receipt Date: 20250214
  Transmission Date: 20250409
  Serious: Yes (Hospitalization, Other)
  Sender: SANDOZ
  Company Number: ES-SANDOZ-SDZ2025ES009058

PATIENT
  Age: 73 Year
  Sex: Female

DRUGS (2)
  1. LINEZOLID [Suspect]
     Active Substance: LINEZOLID
     Indication: Nocardiosis
     Dosage: 600 MG EVERY 12 HOURS
     Route: 048
  2. KETOCONAZOLE [Concomitant]
     Active Substance: KETOCONAZOLE
     Indication: Cortisol abnormal
     Route: 065

REACTIONS (4)
  - Vomiting [Recovering/Resolving]
  - Lactic acidosis [Recovering/Resolving]
  - Anaemia [Recovering/Resolving]
  - Off label use [Unknown]
